FAERS Safety Report 7350314-0 (Version None)
Quarter: 2011Q1

REPORT INFORMATION
  Report Type: 
  Country: None (occurrence: None)
  Receive Date: 20110222
  Receipt Date: 20101231
  Transmission Date: 20110831
  Serious: No
  Sender: FDA-Public Use
  Company Number: 024786

PATIENT
  Age: 41 Year
  Sex: Female

DRUGS (1)
  1. LACOSAMIDE [Suspect]

REACTIONS (1)
  - CONVULSION [None]
